FAERS Safety Report 7865820-X (Version None)
Quarter: 2011Q4

REPORT INFORMATION
  Report Type: 
  Country: None (occurrence: None)
  Receive Date: 20111028
  Receipt Date: 20110303
  Transmission Date: 20120403
  Serious: No
  Sender: FDA-Public Use
  Company Number: US-GLAXOSMITHKLINE-A0916451A

PATIENT
  Age: 87 Year
  Sex: Male

DRUGS (11)
  1. KETOCONAZOLE [Suspect]
     Dates: start: 20110217
  2. SYNTHROID [Concomitant]
  3. COREG [Concomitant]
  4. NIASPAN [Concomitant]
  5. ASPIRIN [Concomitant]
  6. VENTOLIN [Concomitant]
  7. ADVAIR DISKUS 100/50 [Suspect]
     Indication: CHRONIC OBSTRUCTIVE PULMONARY DISEASE
     Dosage: 1PUFF PER DAY
     Route: 055
  8. LASIX [Concomitant]
  9. NEXIUM [Concomitant]
  10. COZAAR [Concomitant]
  11. KETOCONAZOLE [Suspect]
     Dates: start: 20110217

REACTIONS (1)
  - DYSPNOEA [None]
